FAERS Safety Report 6962108-6 (Version None)
Quarter: 2010Q3

REPORT INFORMATION
  Report Type: 
  Country: None (occurrence: None)
  Receive Date: 20100901
  Receipt Date: 20100901
  Transmission Date: 20110219
  Serious: Yes (Hospitalization)
  Sender: FDA-Public Use
  Company Number: None

PATIENT
  Age: 15 Year
  Sex: Female
  Weight: 49 kg

DRUGS (2)
  1. ARMODAFINIL [Suspect]
     Indication: SLEEP PARALYSIS
     Dosage: 150MG DAILY PO
     Route: 048
     Dates: start: 20100816, end: 20100822
  2. ARMODAFINIL [Suspect]
     Indication: SLEEP PARALYSIS
     Dosage: 250MG DAILY PO
     Route: 048
     Dates: start: 20100823, end: 20100826

REACTIONS (8)
  - LIP SWELLING [None]
  - OCULAR HYPERAEMIA [None]
  - ODYNOPHAGIA [None]
  - OROPHARYNGEAL BLISTERING [None]
  - OROPHARYNGEAL PAIN [None]
  - PRURITUS [None]
  - RASH [None]
  - UPPER RESPIRATORY TRACT INFECTION [None]
